FAERS Safety Report 7240519-1 (Version None)
Quarter: 2011Q1

REPORT INFORMATION
  Report Type: 
  Country: None (occurrence: None)
  Receive Date: 20110124
  Receipt Date: 20110119
  Transmission Date: 20110831
  Serious: No
  Sender: FDA-Public Use
  Company Number: US-PFIZER INC-2011013234

PATIENT
  Sex: Male
  Weight: 97.506 kg

DRUGS (4)
  1. LIPITOR [Suspect]
     Indication: HYPERLIPIDAEMIA
     Dosage: UNK
     Dates: start: 20090601
  2. PLAVIX [Concomitant]
     Dosage: 75 MG, UNK
  3. DIOVAN [Concomitant]
     Dosage: 80 MG, UNK
  4. COREG [Concomitant]
     Dosage: 20 MG, 1X/DAY

REACTIONS (1)
  - MUSCULOSKELETAL PAIN [None]
